FAERS Safety Report 7772127-8 (Version None)
Quarter: 2011Q3

REPORT INFORMATION
  Report Type: 
  Country: None (occurrence: None)
  Receive Date: 20110922
  Receipt Date: 20110120
  Transmission Date: 20111222
  Serious: No
  Sender: FDA-Public Use
  Company Number: US-ASTRAZENECA-2011SE03457

PATIENT
  Age: 71 Year
  Sex: Male
  Weight: 78 kg

DRUGS (6)
  1. LAMOTRIGINE [Concomitant]
  2. LOVASTATIN [Concomitant]
  3. SEROQUEL [Suspect]
     Indication: AFFECTIVE DISORDER
     Route: 048
  4. NAMENDA [Concomitant]
  5. SULFASALAZINE [Concomitant]
  6. FLOMAX [Concomitant]

REACTIONS (3)
  - PENILE PAIN [None]
  - DYSURIA [None]
  - GROIN PAIN [None]
